FAERS Safety Report 10225586 (Version 1)
Quarter: 2014Q2

REPORT INFORMATION
  Report Type: Spontaneous
  Country: US (occurrence: US)
  Receive Date: 20140609
  Receipt Date: 20140609
  Transmission Date: 20141212
  Serious: Yes (Hospitalization)
  Sender: FDA-Public Use
  Company Number: US-ASTELLAS-2013US012824

PATIENT
  Sex: Female

DRUGS (7)
  1. PROGRAF [Suspect]
     Indication: LIVER TRANSPLANT
     Route: 048
     Dates: start: 200606
  2. CELLCEPT                           /01275104/ [Concomitant]
     Indication: PRODUCT USED FOR UNKNOWN INDICATION
     Route: 065
  3. OMEPRAZOLE [Concomitant]
     Indication: PRODUCT USED FOR UNKNOWN INDICATION
     Route: 065
  4. UNSPECIFIED SLEEP MEDICATION [Concomitant]
     Indication: INSOMNIA
     Route: 065
  5. METHADONE [Concomitant]
     Indication: PRODUCT USED FOR UNKNOWN INDICATION
     Route: 065
  6. LOVAZA [Concomitant]
     Indication: THYROID DISORDER
     Route: 065
  7. LANTUS [Concomitant]
     Indication: THYROID DISORDER
     Route: 065

REACTIONS (2)
  - Peripheral swelling [Unknown]
  - Varicose vein [Unknown]
